FAERS Safety Report 4601801-7 (Version None)
Quarter: 2005Q1

REPORT INFORMATION
  Report Type: 
  Country: None (occurrence: None)
  Receive Date: 20050128
  Receipt Date: 20041005
  Transmission Date: 20050727
  Serious: Yes (Hospitalization)
  Sender: FDA-Public Use
  Company Number: 140264USA

PATIENT

DRUGS (8)
  1. COPAXONE [Suspect]
     Indication: MULTIPLE SCLEROSIS
     Dosage: 20 MILLIGRAM QD SUBCUTANEOUS
     Route: 058
     Dates: start: 20011221, end: 20040601
  2. SKELEX [Concomitant]
  3. ZANAFLEX [Concomitant]
  4. PROCARDIA [Concomitant]
  5. AMBIEN [Concomitant]
  6. PROZAC [Concomitant]
  7. NEXIUM [Concomitant]
  8. K-DUR 10 [Concomitant]

REACTIONS (3)
  - MULTIPLE SCLEROSIS RELAPSE [None]
  - TREMOR [None]
  - VISUAL DISTURBANCE [None]
